FAERS Safety Report 5650729-2 (Version None)
Quarter: 2008Q1

REPORT INFORMATION
  Report Type: 
  Country: None (occurrence: None)
  Receive Date: 20080303
  Receipt Date: 20080116
  Transmission Date: 20080703
  Serious: Yes (Hospitalization, Other)
  Sender: FDA-Public Use
  Company Number: 79948

PATIENT
  Age: 69 Year
  Sex: Male

DRUGS (15)
  1. ALVESCO [Suspect]
     Indication: ASTHMA
     Dosage: 1/DAY 160 ?G, INHALATION
     Route: 055
     Dates: start: 20060504
  2. ALVESCO [Suspect]
     Indication: ASTHMA
     Dosage: 1/DAY 160 ?G, INHALATION
     Route: 055
     Dates: start: 20060910
  3. SALBUTAMOL (SALBUTAMOL) [Concomitant]
  4. SPIRONOLACTONE [Concomitant]
  5. ATROVENT [Concomitant]
  6. DIOVAN [Concomitant]
  7. ASCAL (ACETYLSALICYLATE CALCIUM) [Concomitant]
  8. SELOKEEN ZOC (METOPROLOL SUCCINATE) [Concomitant]
  9. BUMETANIDE [Concomitant]
  10. METFORMIN HCL [Concomitant]
  11. PREDNISOLONE [Concomitant]
  12. AVELOX [Concomitant]
  13. .. [Concomitant]
  14. . [Concomitant]
  15. . [Concomitant]

REACTIONS (1)
  - CHEST PAIN [None]
